FAERS Safety Report 19437163 (Version 2)
Quarter: 2021Q2

REPORT INFORMATION
  Report Type: Spontaneous
  Country: DE (occurrence: DE)
  Receive Date: 20210618
  Receipt Date: 20210627
  Transmission Date: 20210717
  Serious: Yes (Death)
  Sender: FDA-Public Use
  Company Number: NVSC2021DE137417

PATIENT
  Age: 55 Year
  Sex: Male
  Weight: 31.75 kg

DRUGS (2)
  1. GILENYA [Suspect]
     Active Substance: FINGOLIMOD HYDROCHLORIDE
     Dosage: UNK, QD
     Route: 048
     Dates: start: 201310, end: 20210103
  2. GILENYA [Suspect]
     Active Substance: FINGOLIMOD HYDROCHLORIDE
     Indication: RELAPSING-REMITTING MULTIPLE SCLEROSIS
     Dosage: UNK
     Route: 065
     Dates: start: 201310, end: 202012

REACTIONS (2)
  - Oesophageal adenocarcinoma [Fatal]
  - Oesophageal cancer metastatic [Fatal]

NARRATIVE: CASE EVENT DATE: 20201216
